FAERS Safety Report 9596842 (Version 2)
Quarter: 2013Q4

REPORT INFORMATION
  Report Type: Spontaneous
  Country: US (occurrence: US)
  Receive Date: 20131004
  Receipt Date: 20131004
  Transmission Date: 20140711
  Serious: No
  Sender: FDA-Public Use
  Company Number: US-PFIZER INC-2013284949

PATIENT
  Age: 62 Year
  Sex: Male
  Weight: 120 kg

DRUGS (2)
  1. CHANTIX [Suspect]
     Indication: SMOKING CESSATION THERAPY
     Dosage: UNK
  2. HYDROCHLOROTHIAZIDE/LOSARTAN [Concomitant]
     Indication: HYPERTENSION
     Dosage: LOSARTAN 50 MG/HYDROCHLOROTHIAZIDE 12.5 MG, 1X/DAY

REACTIONS (1)
  - Abnormal dreams [Not Recovered/Not Resolved]
